FAERS Safety Report 6725451-1 (Version None)
Quarter: 2010Q2

REPORT INFORMATION
  Report Type: 
  Country: None (occurrence: None)
  Receive Date: 20100514
  Receipt Date: 20100511
  Transmission Date: 20101027
  Serious: Yes (Death)
  Sender: FDA-Public Use
  Company Number: US-ASTRAZENECA-2010SE07294

PATIENT
  Age: 39 Year
  Sex: Male

DRUGS (6)
  1. SEROQUEL XR [Suspect]
     Indication: BIPOLAR I DISORDER
     Route: 048
     Dates: start: 20100119
  2. HALDOL [Concomitant]
     Dosage: DAILY
  3. ALPRAZOLAM [Concomitant]
     Dosage: TID
  4. MS CONTIN [Concomitant]
     Dosage: Q 12 HR
  5. LITHIUM CARBONATE [Concomitant]
     Dosage: TID (BUT DID NOT TAKE IT REGULARLY)
  6. SYMBYAX [Concomitant]

REACTIONS (1)
  - DEATH [None]
